FAERS Safety Report 5562742-4 (Version None)
Quarter: 2007Q4

REPORT INFORMATION
  Report Type: 
  Country: None (occurrence: None)
  Receive Date: 20071217
  Receipt Date: 20071206
  Transmission Date: 20080405
  Serious: Yes (Other)
  Sender: FDA-Public Use
  Company Number: PHMT2007CA02391

PATIENT

DRUGS (1)
  1. GLEEVEC [Suspect]

REACTIONS (3)
  - BASEDOW'S DISEASE [None]
  - INTRAOCULAR PRESSURE INCREASED [None]
  - OEDEMA [None]
